FAERS Safety Report 10030002 (Version 2)
Quarter: 2014Q1

REPORT INFORMATION
  Report Type: Spontaneous
  Country: US (occurrence: US)
  Receive Date: 20140323
  Receipt Date: 20140323
  Transmission Date: 20141002
  Serious: Yes (Disabling)
  Sender: FDA-Public Use
  Company Number: US-GE HEALTHCARE MEDICAL DIAGNOSTICS-OSCN-PR-1012S-0302

PATIENT
  Age: 57 Year
  Sex: Female

DRUGS (11)
  1. GADOLINIUM (UNSPECIFIED) [Suspect]
     Indication: PRODUCT USED FOR UNKNOWN INDICATION
     Route: 065
     Dates: start: 20030927, end: 20030927
  2. GADOLINIUM (UNSPECIFIED) [Suspect]
     Route: 065
     Dates: start: 20040115, end: 20040115
  3. GADOLINIUM (UNSPECIFIED) [Suspect]
     Route: 065
     Dates: start: 20040701, end: 20040701
  4. GADOLINIUM (UNSPECIFIED) [Suspect]
     Route: 065
     Dates: start: 20041029, end: 20041029
  5. GADOLINIUM (UNSPECIFIED) [Suspect]
     Route: 065
     Dates: start: 20041110, end: 20041110
  6. GADOLINIUM (UNSPECIFIED) [Suspect]
     Route: 065
     Dates: start: 20041213, end: 20041213
  7. GADOLINIUM (UNSPECIFIED) [Suspect]
     Route: 065
     Dates: start: 20050217, end: 20050217
  8. GADOLINIUM (UNSPECIFIED) [Suspect]
     Route: 065
     Dates: start: 20050519, end: 20050519
  9. GADOLINIUM (UNSPECIFIED) [Suspect]
     Route: 065
     Dates: start: 20050520, end: 20050520
  10. OMNIPAQUE [Suspect]
     Dates: start: 20041003, end: 20041003
  11. VISIPAQUE [Suspect]
     Dates: start: 20041003, end: 20041003

REACTIONS (1)
  - Nephrogenic systemic fibrosis [Not Recovered/Not Resolved]
